FAERS Safety Report 5817051-2 (Version None)
Quarter: 2008Q3

REPORT INFORMATION
  Report Type: 
  Country: None (occurrence: None)
  Receive Date: 20080722
  Receipt Date: 20080717
  Transmission Date: 20090109
  Serious: Yes (Hospitalization)
  Sender: FDA-Public Use
  Company Number: GB-TEVA-155411ISR

PATIENT
  Sex: Female

DRUGS (5)
  1. AZILECT [Suspect]
     Indication: PARKINSON'S DISEASE
     Route: 048
     Dates: start: 20070412, end: 20070413
  2. AZILECT [Suspect]
     Dates: start: 20070414, end: 20070415
  3. AZILECT [Suspect]
     Dates: start: 20070416
  4. STALEVO 100 [Concomitant]
     Dosage: 100
  5. TRAMADOL HCL [Concomitant]

REACTIONS (8)
  - BLOOD TEST ABNORMAL [None]
  - DEHYDRATION [None]
  - DYSKINESIA [None]
  - INTENTIONAL SELF-INJURY [None]
  - MEDICATION ERROR [None]
  - RECTAL HAEMORRHAGE [None]
  - SEROTONIN SYNDROME [None]
  - URINE COLOUR ABNORMAL [None]
